FAERS Safety Report 24366454 (Version 5)
Quarter: 2025Q3

REPORT INFORMATION
  Report Type: Spontaneous
  Country: CA (occurrence: CA)
  Receive Date: 20240926
  Receipt Date: 20250725
  Transmission Date: 20251021
  Serious: Yes (Death, Life-Threatening, Hospitalization, Disabling, Congenital Anomaly, Other)
  Sender: Haleon PLC
  Company Number: CA-002147023-NVSC2024CA182401

PATIENT
  Age: 40 Year
  Sex: Female
  Weight: 96 kg

DRUGS (216)
  1. VOLTAREN [Suspect]
     Active Substance: DICLOFENAC SODIUM
     Indication: Product used for unknown indication
     Route: 058
  2. VOLTAREN [Suspect]
     Active Substance: DICLOFENAC SODIUM
  3. DICLOFENAC SODIUM [Suspect]
     Active Substance: DICLOFENAC SODIUM
     Indication: Product used for unknown indication
  4. DICLOFENAC SODIUM [Suspect]
     Active Substance: DICLOFENAC SODIUM
  5. ZINC [Suspect]
     Active Substance: ZINC
     Indication: Rheumatoid arthritis
  6. ACETAMINOPHEN [Suspect]
     Active Substance: ACETAMINOPHEN
     Indication: Rheumatoid arthritis
     Route: 065
  7. ACETAMINOPHEN [Suspect]
     Active Substance: ACETAMINOPHEN
     Route: 065
  8. DICLOFENAC SODIUM [Suspect]
     Active Substance: DICLOFENAC SODIUM
     Indication: Product used for unknown indication
  9. DICLOFENAC SODIUM [Suspect]
     Active Substance: DICLOFENAC SODIUM
  10. DICLOFENAC SODIUM [Suspect]
     Active Substance: DICLOFENAC SODIUM
     Route: 058
  11. AIMOVIG [Suspect]
     Active Substance: ERENUMAB-AOOE
     Indication: Migraine
  12. ADALIMUMAB [Suspect]
     Active Substance: ADALIMUMAB
     Indication: Rheumatoid arthritis
     Route: 058
  13. ADALIMUMAB [Suspect]
     Active Substance: ADALIMUMAB
     Route: 058
  14. ADALIMUMAB [Suspect]
     Active Substance: ADALIMUMAB
     Dosage: 40 MG, Q2W (2/DAYS)
     Route: 058
  15. ALENDRONATE SODIUM [Suspect]
     Active Substance: ALENDRONATE SODIUM
     Indication: Rheumatoid arthritis
  16. ALENDRONATE SODIUM\CHOLECALCIFEROL [Suspect]
     Active Substance: ALENDRONATE SODIUM\CHOLECALCIFEROL
     Indication: Product used for unknown indication
  17. ALENDRONIC ACID [Suspect]
     Active Substance: ALENDRONIC ACID
     Indication: Rheumatoid arthritis
  18. ALENDRONIC ACID [Suspect]
     Active Substance: ALENDRONIC ACID
     Route: 048
  19. PREDNISONE [Suspect]
     Active Substance: PREDNISONE
     Indication: Rheumatoid arthritis
  20. PREDNISONE [Suspect]
     Active Substance: PREDNISONE
     Route: 048
  21. PREDNISONE [Suspect]
     Active Substance: PREDNISONE
     Route: 048
  22. PREDNISONE [Suspect]
     Active Substance: PREDNISONE
     Route: 048
  23. PREDNISONE [Suspect]
     Active Substance: PREDNISONE
  24. PREDNISONE [Suspect]
     Active Substance: PREDNISONE
     Route: 048
  25. LEFLUNOMIDE [Suspect]
     Active Substance: LEFLUNOMIDE
     Indication: Rheumatoid arthritis
     Route: 048
  26. ARAVA [Suspect]
     Active Substance: LEFLUNOMIDE
     Indication: Rheumatoid arthritis
     Route: 048
  27. ASCORBIC ACID [Suspect]
     Active Substance: ASCORBIC ACID
     Indication: Product used for unknown indication
  28. BERINERT [Suspect]
     Active Substance: HUMAN C1-ESTERASE INHIBITOR
     Indication: Product used for unknown indication
  29. BOTULINUM TOXIN TYPE A [Suspect]
     Active Substance: BOTULINUM TOXIN TYPE A
     Indication: Product used for unknown indication
  30. BUTRANS [Suspect]
     Active Substance: BUPRENORPHINE
     Indication: Product used for unknown indication
  31. CANDESARTAN [Suspect]
     Active Substance: CANDESARTAN
     Indication: Migraine
  32. CELEBREX [Suspect]
     Active Substance: CELECOXIB
     Indication: Product used for unknown indication
     Dosage: 1 EVERY 5 DAYS
  33. CELEBREX [Suspect]
     Active Substance: CELECOXIB
     Dosage: 1 EVERY 5 DAYS
     Route: 048
  34. CELEBREX [Suspect]
     Active Substance: CELECOXIB
     Dosage: 1 EVERY 1 DAYS
  35. CELEBREX [Suspect]
     Active Substance: CELECOXIB
     Dosage: 1 EVERY 1 DAYS
  36. CHLORHEXIDINE GLUCONATE [Suspect]
     Active Substance: CHLORHEXIDINE GLUCONATE
     Indication: Product used for unknown indication
  37. CHOLOGRAFIN MEGLUMINE [Suspect]
     Active Substance: IODIPAMIDE MEGLUMINE
     Indication: Product used for unknown indication
     Route: 042
  38. CHOLOGRAFIN MEGLUMINE [Suspect]
     Active Substance: IODIPAMIDE MEGLUMINE
     Route: 042
  39. CHOLOGRAFIN MEGLUMINE [Suspect]
     Active Substance: IODIPAMIDE MEGLUMINE
     Route: 042
  40. CIMZIA [Suspect]
     Active Substance: CERTOLIZUMAB PEGOL
     Indication: Rheumatoid arthritis
     Route: 058
  41. CIMZIA [Suspect]
     Active Substance: CERTOLIZUMAB PEGOL
     Route: 058
  42. CIMZIA [Suspect]
     Active Substance: CERTOLIZUMAB PEGOL
     Route: 058
  43. CIMZIA [Suspect]
     Active Substance: CERTOLIZUMAB PEGOL
     Route: 058
  44. CIMZIA [Suspect]
     Active Substance: CERTOLIZUMAB PEGOL
     Route: 058
  45. DESOXIMETASONE [Suspect]
     Active Substance: DESOXIMETASONE
     Indication: Rheumatoid arthritis
     Route: 058
  46. DESOXIMETASONE [Suspect]
     Active Substance: DESOXIMETASONE
     Route: 058
  47. DESOXIMETASONE [Suspect]
     Active Substance: DESOXIMETASONE
     Route: 048
  48. DESOXIMETASONE [Suspect]
     Active Substance: DESOXIMETASONE
     Route: 048
  49. DOMPERIDONE MALEATE [Suspect]
     Active Substance: DOMPERIDONE MALEATE
     Indication: Product used for unknown indication
  50. ENBREL [Suspect]
     Active Substance: ETANERCEPT
     Indication: Rheumatoid arthritis
     Route: 058
  51. ENBREL [Suspect]
     Active Substance: ETANERCEPT
     Route: 058
  52. ENBREL [Suspect]
     Active Substance: ETANERCEPT
  53. ENBREL [Suspect]
     Active Substance: ETANERCEPT
     Route: 058
  54. ENBREL [Suspect]
     Active Substance: ETANERCEPT
  55. ENBREL [Suspect]
     Active Substance: ETANERCEPT
     Route: 058
  56. ENBREL [Suspect]
     Active Substance: ETANERCEPT
     Route: 058
  57. ENBREL [Suspect]
     Active Substance: ETANERCEPT
  58. METHYLPREDNISOLONE ACETATE [Suspect]
     Active Substance: METHYLPREDNISOLONE ACETATE
     Indication: Product used for unknown indication
  59. METHYLPREDNISOLONE SODIUM SUCCINATE [Suspect]
     Active Substance: METHYLPREDNISOLONE SODIUM SUCCINATE
     Indication: Product used for unknown indication
  60. MINOCYCLINE HYDROCHLORIDE [Suspect]
     Active Substance: MINOCYCLINE HYDROCHLORIDE
     Indication: Rheumatoid arthritis
  61. MINOCYCLINE HYDROCHLORIDE [Suspect]
     Active Substance: MINOCYCLINE HYDROCHLORIDE
  62. MYOCHRYSINE [Suspect]
     Active Substance: GOLD SODIUM THIOMALATE
     Indication: Rheumatoid arthritis
     Route: 030
  63. NAPROSYN [Suspect]
     Active Substance: NAPROXEN
     Indication: Product used for unknown indication
  64. NAPROXEN SODIUM [Suspect]
     Active Substance: NAPROXEN SODIUM
     Indication: Rheumatoid arthritis
  65. NICOTINAMIDE [Suspect]
     Active Substance: NIACINAMIDE
     Indication: Product used for unknown indication
  66. NUCALA [Suspect]
     Active Substance: MEPOLIZUMAB
     Indication: Product used for unknown indication
  67. ORENCIA [Suspect]
     Active Substance: ABATACEPT
     Indication: Rheumatoid arthritis
  68. OXYCODONE HYDROCHLORIDE [Suspect]
     Active Substance: OXYCODONE HYDROCHLORIDE
     Indication: Product used for unknown indication
  69. PERIOGARD [Suspect]
     Active Substance: CHLORHEXIDINE GLUCONATE
     Indication: Product used for unknown indication
     Route: 002
  70. PREDNISONE [Suspect]
     Active Substance: PREDNISONE
     Indication: Rheumatoid arthritis
     Route: 048
  71. TOPIRAMATE [Suspect]
     Active Substance: TOPIRAMATE
     Indication: Product used for unknown indication
  72. TOPIRAMATE [Suspect]
     Active Substance: TOPIRAMATE
  73. TOPIRAMATE [Suspect]
     Active Substance: TOPIRAMATE
  74. VITAMIN C [Suspect]
     Active Substance: ASCORBIC ACID
     Indication: Product used for unknown indication
  75. VITAMIN C [Suspect]
     Active Substance: ASCORBIC ACID
  76. XELJANZ [Suspect]
     Active Substance: TOFACITINIB CITRATE
     Indication: Rheumatoid arthritis
     Route: 048
  77. XELJANZ [Suspect]
     Active Substance: TOFACITINIB CITRATE
     Route: 048
  78. ACETAMINOPHEN\TRAMADOL HYDROCHLORIDE [Suspect]
     Active Substance: ACETAMINOPHEN\TRAMADOL HYDROCHLORIDE
     Indication: Product used for unknown indication
     Route: 065
  79. ACTEMRA [Suspect]
     Active Substance: TOCILIZUMAB
     Indication: Rheumatoid arthritis
     Route: 058
  80. ACTEMRA [Suspect]
     Active Substance: TOCILIZUMAB
     Route: 042
  81. ACTEMRA [Suspect]
     Active Substance: TOCILIZUMAB
     Route: 042
  82. ACTEMRA [Suspect]
     Active Substance: TOCILIZUMAB
     Route: 042
  83. ACTEMRA [Suspect]
     Active Substance: TOCILIZUMAB
     Route: 042
  84. ACTEMRA [Suspect]
     Active Substance: TOCILIZUMAB
     Route: 042
  85. ACTEMRA [Suspect]
     Active Substance: TOCILIZUMAB
     Route: 042
  86. ACTEMRA [Suspect]
     Active Substance: TOCILIZUMAB
  87. ACTEMRA [Suspect]
     Active Substance: TOCILIZUMAB
  88. ACTEMRA [Suspect]
     Active Substance: TOCILIZUMAB
     Route: 042
  89. AZATHIOPRINE SODIUM [Suspect]
     Active Substance: AZATHIOPRINE SODIUM
     Indication: Rheumatoid arthritis
  90. CETIRIZINE [Suspect]
     Active Substance: CETIRIZINE HYDROCHLORIDE
     Indication: Rheumatoid arthritis
     Route: 048
  91. CETIRIZINE [Suspect]
     Active Substance: CETIRIZINE HYDROCHLORIDE
     Route: 048
  92. CETIRIZINE [Suspect]
     Active Substance: CETIRIZINE HYDROCHLORIDE
  93. CETIRIZINE [Suspect]
     Active Substance: CETIRIZINE HYDROCHLORIDE
     Route: 048
  94. CETIRIZINE [Suspect]
     Active Substance: CETIRIZINE HYDROCHLORIDE
  95. CETIRIZINE [Suspect]
     Active Substance: CETIRIZINE HYDROCHLORIDE
  96. CETIRIZINE [Suspect]
     Active Substance: CETIRIZINE HYDROCHLORIDE
  97. VITAMIN A [Suspect]
     Active Substance: VITAMIN A
     Indication: Product used for unknown indication
  98. VITAMIN A [Suspect]
     Active Substance: VITAMIN A
  99. FLUMETHASONE PIVALATE [Suspect]
     Active Substance: FLUMETHASONE PIVALATE
     Indication: Product used for unknown indication
  100. FLUMETHASONE PIVALATE [Suspect]
     Active Substance: FLUMETHASONE PIVALATE
  101. FLUMETHASONE\SALICYLIC ACID [Suspect]
     Active Substance: FLUMETHASONE\SALICYLIC ACID
     Indication: Product used for unknown indication
  102. FOLIC ACID [Suspect]
     Active Substance: FOLIC ACID
     Indication: Rheumatoid arthritis
     Route: 048
  103. FOLIC ACID [Suspect]
     Active Substance: FOLIC ACID
     Route: 058
  104. FOLIC ACID [Suspect]
     Active Substance: FOLIC ACID
     Route: 048
  105. FOLIC ACID [Suspect]
     Active Substance: FOLIC ACID
  106. FOLIC ACID [Suspect]
     Active Substance: FOLIC ACID
     Route: 048
  107. FOLIC ACID [Suspect]
     Active Substance: FOLIC ACID
     Route: 048
  108. FOLIC ACID [Suspect]
     Active Substance: FOLIC ACID
  109. FOLIC ACID [Suspect]
     Active Substance: FOLIC ACID
     Route: 058
  110. FOLIC ACID [Suspect]
     Active Substance: FOLIC ACID
     Route: 048
  111. FOLIC ACID [Suspect]
     Active Substance: FOLIC ACID
  112. FOSAMAX [Suspect]
     Active Substance: ALENDRONATE SODIUM
     Indication: Rheumatoid arthritis
     Route: 058
  113. FOSAMAX [Suspect]
     Active Substance: ALENDRONATE SODIUM
     Route: 048
  114. FOSAMAX [Suspect]
     Active Substance: ALENDRONATE SODIUM
     Route: 016
  115. HAIR KERATIN AMINO ACIDS GOLD COMPLEX [Suspect]
     Active Substance: HAIR KERATIN AMINO ACIDS GOLD COMPLEX
     Indication: Product used for unknown indication
  116. HUMIRA [Suspect]
     Active Substance: ADALIMUMAB
     Indication: Rheumatoid arthritis
     Route: 058
  117. HUMIRA [Suspect]
     Active Substance: ADALIMUMAB
  118. HUMIRA [Suspect]
     Active Substance: ADALIMUMAB
     Route: 058
  119. HYDROXYCHLOROQUINE [Suspect]
     Active Substance: HYDROXYCHLOROQUINE
     Indication: Rheumatoid arthritis
     Route: 058
  120. HYDROXYCHLOROQUINE [Suspect]
     Active Substance: HYDROXYCHLOROQUINE
     Route: 048
  121. HYDROXYCHLOROQUINE [Suspect]
     Active Substance: HYDROXYCHLOROQUINE
     Route: 048
  122. INFLIXIMAB [Suspect]
     Active Substance: INFLIXIMAB
     Indication: Rheumatoid arthritis
     Route: 042
  123. INFLIXIMAB [Suspect]
     Active Substance: INFLIXIMAB
     Route: 042
  124. INFLIXIMAB [Suspect]
     Active Substance: INFLIXIMAB
     Route: 058
  125. INFLIXIMAB [Suspect]
     Active Substance: INFLIXIMAB
     Route: 042
  126. INFLIXIMAB [Suspect]
     Active Substance: INFLIXIMAB
     Route: 042
  127. ISOPROPYL ALCOHOL [Suspect]
     Active Substance: ISOPROPYL ALCOHOL
     Indication: Product used for unknown indication
     Route: 048
  128. ISOPROPYL ALCOHOL [Suspect]
     Active Substance: ISOPROPYL ALCOHOL
     Route: 048
  129. ISOPROPYL ALCOHOL [Suspect]
     Active Substance: ISOPROPYL ALCOHOL
     Route: 048
  130. LEFLUNOMIDE [Suspect]
     Active Substance: LEFLUNOMIDE
     Indication: Rheumatoid arthritis
     Route: 048
  131. LEFLUNOMIDE [Suspect]
     Active Substance: LEFLUNOMIDE
  132. LEFLUNOMIDE [Suspect]
     Active Substance: LEFLUNOMIDE
  133. METHOTREXATE [Suspect]
     Active Substance: METHOTREXATE
     Indication: Rheumatoid arthritis
     Route: 048
  134. METHOTREXATE [Suspect]
     Active Substance: METHOTREXATE
     Route: 058
  135. METHOTREXATE [Suspect]
     Active Substance: METHOTREXATE
     Route: 048
  136. METHOTREXATE [Suspect]
     Active Substance: METHOTREXATE
  137. PSEUDOEPHEDRINE HYDROCHLORIDE [Suspect]
     Active Substance: PSEUDOEPHEDRINE HYDROCHLORIDE
     Indication: Rheumatoid arthritis
  138. RAMIPRIL [Suspect]
     Active Substance: RAMIPRIL
     Indication: Rheumatoid arthritis
     Route: 042
  139. CETIRIZINE HYDROCHLORIDE\PSEUDOEPHEDRINE HYDROCHLORIDE [Suspect]
     Active Substance: CETIRIZINE HYDROCHLORIDE\PSEUDOEPHEDRINE HYDROCHLORIDE
     Indication: Rheumatoid arthritis
     Route: 042
  140. CETIRIZINE HYDROCHLORIDE\PSEUDOEPHEDRINE HYDROCHLORIDE [Suspect]
     Active Substance: CETIRIZINE HYDROCHLORIDE\PSEUDOEPHEDRINE HYDROCHLORIDE
  141. CETIRIZINE HYDROCHLORIDE\PSEUDOEPHEDRINE HYDROCHLORIDE [Suspect]
     Active Substance: CETIRIZINE HYDROCHLORIDE\PSEUDOEPHEDRINE HYDROCHLORIDE
  142. RITUXIMAB [Suspect]
     Active Substance: RITUXIMAB
     Indication: Rheumatoid arthritis
  143. RITUXIMAB [Suspect]
     Active Substance: RITUXIMAB
     Route: 042
  144. RITUXIMAB [Suspect]
     Active Substance: RITUXIMAB
     Route: 042
  145. RITUXIMAB [Suspect]
     Active Substance: RITUXIMAB
  146. RITUXIMAB [Suspect]
     Active Substance: RITUXIMAB
     Route: 058
  147. RITUXIMAB [Suspect]
     Active Substance: RITUXIMAB
     Dosage: 1 EVERY 5 DAYS
  148. RITUXIMAB [Suspect]
     Active Substance: RITUXIMAB
     Route: 042
  149. RITUXIMAB [Suspect]
     Active Substance: RITUXIMAB
     Route: 042
  150. RITUXIMAB [Suspect]
     Active Substance: RITUXIMAB
     Route: 042
  151. RITUXIMAB [Suspect]
     Active Substance: RITUXIMAB
     Route: 042
  152. SIMPONI [Suspect]
     Active Substance: GOLIMUMAB
     Indication: Rheumatoid arthritis
     Route: 058
  153. SIMPONI [Suspect]
     Active Substance: GOLIMUMAB
     Route: 058
  154. STELARA [Suspect]
     Active Substance: USTEKINUMAB
     Indication: Product used for unknown indication
  155. STELARA [Suspect]
     Active Substance: USTEKINUMAB
  156. SULFASALAZINE [Suspect]
     Active Substance: SULFASALAZINE
     Indication: Rheumatoid arthritis
     Route: 048
  157. SULFASALAZINE [Suspect]
     Active Substance: SULFASALAZINE
  158. SULFASALAZINE [Suspect]
     Active Substance: SULFASALAZINE
     Route: 058
  159. SULFASALAZINE [Suspect]
     Active Substance: SULFASALAZINE
  160. SULFASALAZINE [Suspect]
     Active Substance: SULFASALAZINE
  161. SULFASALAZINE [Suspect]
     Active Substance: SULFASALAZINE
  162. SULFASALAZINE [Suspect]
     Active Substance: SULFASALAZINE
  163. AIMOVIG [Suspect]
     Active Substance: ERENUMAB-AOOE
     Indication: Migraine
  164. GOLD SODIUM THIOMALATE [Suspect]
     Active Substance: GOLD SODIUM THIOMALATE
     Indication: Product used for unknown indication
     Route: 030
  165. GOLD SODIUM THIOMALATE [Suspect]
     Active Substance: GOLD SODIUM THIOMALATE
     Route: 030
  166. CORTISONE ACETATE [Suspect]
     Active Substance: CORTISONE ACETATE
     Indication: Rheumatoid arthritis
     Route: 048
  167. CORTISONE ACETATE [Suspect]
     Active Substance: CORTISONE ACETATE
     Route: 048
  168. CORTISONE ACETATE [Suspect]
     Active Substance: CORTISONE ACETATE
  169. CORTISONE ACETATE [Suspect]
     Active Substance: CORTISONE ACETATE
     Route: 048
  170. MEGLUMINE [Suspect]
     Active Substance: MEGLUMINE
     Indication: Product used for unknown indication
     Route: 042
  171. MEGLUMINE [Suspect]
     Active Substance: MEGLUMINE
  172. MEGLUMINE [Suspect]
     Active Substance: MEGLUMINE
     Route: 042
  173. ATOMOXETINE [Suspect]
     Active Substance: ATOMOXETINE
     Indication: Migraine
  174. ATOMOXETINE [Suspect]
     Active Substance: ATOMOXETINE
  175. COSENTYX [Concomitant]
     Active Substance: SECUKINUMAB
     Indication: Product used for unknown indication
  176. COSENTYX [Concomitant]
     Active Substance: SECUKINUMAB
     Indication: Psoriatic arthropathy
  177. ALENDRONATE [Suspect]
     Active Substance: ALENDRONATE SODIUM
     Indication: Rheumatoid arthritis
  178. DICLOFENAC SODIUM [Suspect]
     Active Substance: DICLOFENAC SODIUM
     Indication: Product used for unknown indication
  179. CALCIUM ASCORBATE [Suspect]
     Active Substance: CALCIUM ASCORBATE
     Indication: Product used for unknown indication
  180. AZATHIOPRINE [Suspect]
     Active Substance: AZATHIOPRINE
     Indication: Rheumatoid arthritis
  181. CALCIUM CITRATE [Suspect]
     Active Substance: CALCIUM CITRATE
     Indication: Product used for unknown indication
  182. CALCIUM GLUBIONATE [Suspect]
     Active Substance: CALCIUM GLUBIONATE
     Indication: Product used for unknown indication
     Route: 016
  183. ERGOCALCIFEROL [Suspect]
     Active Substance: ERGOCALCIFEROL
     Indication: Product used for unknown indication
  184. ERGOCALCIFEROL [Suspect]
     Active Substance: ERGOCALCIFEROL
  185. METHYLPREDNISOLONE SODIUM SUCCINATE [Suspect]
     Active Substance: METHYLPREDNISOLONE SODIUM SUCCINATE
     Indication: Product used for unknown indication
  186. HYDROCORTISONE [Suspect]
     Active Substance: HYDROCORTISONE
     Indication: Product used for unknown indication
  187. FLUMETHASONE PIVALATE [Suspect]
     Active Substance: FLUMETHASONE PIVALATE
     Indication: Product used for unknown indication
  188. FLUMETHASONE PIVALATE [Suspect]
     Active Substance: FLUMETHASONE PIVALATE
  189. FLUMETHASONE [Suspect]
     Active Substance: FLUMETHASONE
     Indication: Product used for unknown indication
  190. MAGNESIUM CITRATE [Suspect]
     Active Substance: MAGNESIUM CITRATE
     Indication: Product used for unknown indication
  191. METHYLPREDNISOLONE [Suspect]
     Active Substance: METHYLPREDNISOLONE
     Indication: Product used for unknown indication
  192. MINOCYCLINE [Suspect]
     Active Substance: MINOCYCLINE HYDROCHLORIDE
     Indication: Product used for unknown indication
  193. PSEUDOEPHEDRINE [Suspect]
     Active Substance: PSEUDOEPHEDRINE
     Indication: Rheumatoid arthritis
  194. PSEUDOEPHEDRINE [Suspect]
     Active Substance: PSEUDOEPHEDRINE
  195. PSEUDOEPHEDRINE [Suspect]
     Active Substance: PSEUDOEPHEDRINE
  196. PSEUDOEPHEDRINE [Suspect]
     Active Substance: PSEUDOEPHEDRINE
  197. PSEUDOEPHEDRINE [Suspect]
     Active Substance: PSEUDOEPHEDRINE
  198. PREDNISONE [Suspect]
     Active Substance: PREDNISONE
     Indication: Rheumatoid arthritis
     Route: 048
  199. PREDNISONE [Suspect]
     Active Substance: PREDNISONE
     Route: 048
  200. PREDNISONE [Suspect]
     Active Substance: PREDNISONE
     Route: 048
  201. PREDNISONE [Suspect]
     Active Substance: PREDNISONE
     Route: 048
  202. PREDNISONE [Suspect]
     Active Substance: PREDNISONE
     Route: 048
  203. CHOLECALCIFEROL [Suspect]
     Active Substance: CHOLECALCIFEROL
     Indication: Product used for unknown indication
  204. RITUXAN [Suspect]
     Active Substance: RITUXIMAB
     Indication: Rheumatoid arthritis
  205. RITUXAN [Suspect]
     Active Substance: RITUXIMAB
     Route: 042
  206. RITUXAN [Suspect]
     Active Substance: RITUXIMAB
     Route: 042
  207. RITUXAN [Suspect]
     Active Substance: RITUXIMAB
  208. RITUXAN [Suspect]
     Active Substance: RITUXIMAB
     Route: 058
  209. RITUXAN [Suspect]
     Active Substance: RITUXIMAB
     Route: 058
  210. RITUXAN [Suspect]
     Active Substance: RITUXIMAB
     Route: 042
  211. RITUXAN [Suspect]
     Active Substance: RITUXIMAB
     Route: 042
  212. RITUXAN [Suspect]
     Active Substance: RITUXIMAB
     Route: 042
  213. RITUXAN [Suspect]
     Active Substance: RITUXIMAB
     Route: 043
  214. IODIPAMIDE MEGLUMINE [Suspect]
     Active Substance: IODIPAMIDE MEGLUMINE
     Indication: Product used for unknown indication
     Route: 042
  215. IODIPAMIDE MEGLUMINE [Suspect]
     Active Substance: IODIPAMIDE MEGLUMINE
     Route: 042
  216. IODIPAMIDE MEGLUMINE [Suspect]
     Active Substance: IODIPAMIDE MEGLUMINE
     Route: 042

REACTIONS (120)
  - Drug-induced liver injury [Fatal]
  - Grip strength decreased [Fatal]
  - Hand deformity [Fatal]
  - Headache [Fatal]
  - Helicobacter infection [Fatal]
  - Hepatic enzyme increased [Fatal]
  - Hepatitis [Fatal]
  - Hypercholesterolaemia [Fatal]
  - Hypersensitivity [Fatal]
  - Hypertension [Fatal]
  - Ill-defined disorder [Fatal]
  - Impaired healing [Fatal]
  - Inflammation [Fatal]
  - Infusion related reaction [Fatal]
  - Injection site reaction [Fatal]
  - Injury [Fatal]
  - Insomnia [Fatal]
  - Intentional product use issue [Fatal]
  - Irritable bowel syndrome [Fatal]
  - Joint range of motion decreased [Fatal]
  - Joint swelling [Fatal]
  - Lip dry [Fatal]
  - Live birth [Fatal]
  - Onychomycosis [Fatal]
  - Osteoarthritis [Fatal]
  - Pain [Fatal]
  - Paraesthesia [Fatal]
  - Pain in extremity [Fatal]
  - Pemphigus [Fatal]
  - Peripheral swelling [Fatal]
  - Pericarditis [Fatal]
  - Peripheral venous disease [Fatal]
  - Pneumonia [Fatal]
  - Product label confusion [Fatal]
  - Product quality issue [Fatal]
  - Product use in unapproved indication [Fatal]
  - Psoriatic arthropathy [Fatal]
  - Rash [Fatal]
  - Rheumatic fever [Fatal]
  - Rheumatoid arthritis [Fatal]
  - Sleep disorder [Fatal]
  - Swelling [Fatal]
  - Stomatitis [Fatal]
  - Asthenia [Fatal]
  - Anti-cyclic citrullinated peptide antibody positive [Fatal]
  - Adverse reaction [Fatal]
  - Arthropathy [Fatal]
  - Abdominal distension [Fatal]
  - Abdominal discomfort [Fatal]
  - Abdominal pain upper [Fatal]
  - Alopecia [Fatal]
  - Arthralgia [Fatal]
  - Back injury [Fatal]
  - Blepharospasm [Fatal]
  - Blister [Fatal]
  - Blood cholesterol increased [Fatal]
  - Breast cancer stage III [Fatal]
  - Bursitis [Fatal]
  - C-reactive protein abnormal [Fatal]
  - Coeliac disease [Fatal]
  - Condition aggravated [Fatal]
  - Confusional state [Fatal]
  - Contraindicated product administered [Fatal]
  - Depression [Fatal]
  - Diarrhoea [Fatal]
  - Dizziness [Fatal]
  - Drug ineffective [Fatal]
  - Drug intolerance [Fatal]
  - Dry mouth [Fatal]
  - Duodenal ulcer perforation [Fatal]
  - Dyspepsia [Fatal]
  - Dyspnoea [Fatal]
  - Epilepsy [Fatal]
  - Exposure during pregnancy [Fatal]
  - Facet joint syndrome [Fatal]
  - Fall [Fatal]
  - Fatigue [Fatal]
  - Fibromyalgia [Fatal]
  - Finger deformity [Fatal]
  - Folliculitis [Fatal]
  - Gait inability [Fatal]
  - Gastrointestinal disorder [Fatal]
  - Gastrooesophageal reflux disease [Fatal]
  - Glossodynia [Fatal]
  - Liver function test increased [Fatal]
  - Lower respiratory tract infection [Fatal]
  - Lung disorder [Fatal]
  - Malaise [Fatal]
  - Maternal exposure during pregnancy [Fatal]
  - Memory impairment [Fatal]
  - Migraine [Fatal]
  - Mobility decreased [Fatal]
  - Muscle injury [Fatal]
  - Muscle spasms [Fatal]
  - Muscular weakness [Fatal]
  - Musculoskeletal stiffness [Fatal]
  - Nail disorder [Fatal]
  - Nasopharyngitis [Fatal]
  - Nausea [Fatal]
  - Neck pain [Fatal]
  - Night sweats [Fatal]
  - Obesity [Fatal]
  - Off label use [Fatal]
  - Onychomadesis [Fatal]
  - Synovitis [Fatal]
  - Systemic lupus erythematosus [Fatal]
  - Taste disorder [Fatal]
  - Therapeutic product effect decreased [Fatal]
  - Treatment failure [Fatal]
  - Type 2 diabetes mellitus [Fatal]
  - Urticaria [Fatal]
  - Vomiting [Fatal]
  - Weight increased [Fatal]
  - Wheezing [Fatal]
  - Wound [Fatal]
  - Wound infection [Fatal]
  - Drug hypersensitivity [Fatal]
  - General physical health deterioration [Fatal]
  - Liver injury [Fatal]
  - Loss of personal independence in daily activities [Fatal]
